FAERS Safety Report 24575995 (Version 1)
Quarter: 2024Q4

REPORT INFORMATION
  Report Type: Spontaneous
  Country: CH (occurrence: CH)
  Receive Date: 20241104
  Receipt Date: 20241104
  Transmission Date: 20250115
  Serious: Yes (Hospitalization, Other)
  Sender: MYLAN
  Company Number: None

PATIENT
  Age: 43 Year
  Sex: Female

DRUGS (7)
  1. SERTRALINE [Suspect]
     Active Substance: SERTRALINE HYDROCHLORIDE
     Indication: Product used for unknown indication
     Dosage: 1800 MILLIGRAM, TOTAL (18 TABLETS OF SERTRALINE 100 MG)
     Route: 065
     Dates: start: 20240705, end: 20240705
  2. XANAX [Suspect]
     Active Substance: ALPRAZOLAM
     Indication: Product used for unknown indication
     Dosage: 6.25 MILLIGRAM, TOTAL (25 TABLETS OF ALPRAZOLAM 0.25 MG)
     Route: 065
     Dates: start: 20240705, end: 20240705
  3. CLOTHIAPINE [Suspect]
     Active Substance: CLOTHIAPINE
     Indication: Product used for unknown indication
     Dosage: 1200 MILLIGRAM, TOTAL (30 TABLETS OF CLOTIAPINE 40 MG)
     Route: 065
     Dates: start: 20240705, end: 20240705
  4. ACETAMINOPHEN [Concomitant]
     Active Substance: ACETAMINOPHEN
     Dosage: UNK (MAX. 20 G (DOSE NOT KNOWN))
     Route: 065
     Dates: start: 20240705, end: 20240705
  5. SERTRALINE [Concomitant]
     Active Substance: SERTRALINE HYDROCHLORIDE
     Dosage: 200 MILLIGRAM, QD
     Route: 065
  6. CLOTHIAPINE [Concomitant]
     Active Substance: CLOTHIAPINE
     Dosage: 20 MILLIGRAM, QD
     Route: 065
  7. XANAX [Concomitant]
     Active Substance: ALPRAZOLAM
     Dosage: 0.25 MILLIGRAM, PRN (0.24 MG 1 X DAILY MAX.)
     Route: 065

REACTIONS (5)
  - Altered state of consciousness [Recovered/Resolved]
  - Electrocardiogram QT prolonged [Recovered/Resolved]
  - Suicide attempt [Recovered/Resolved]
  - Psychomotor hyperactivity [Recovered/Resolved]
  - Intentional overdose [Recovered/Resolved]

NARRATIVE: CASE EVENT DATE: 20240705
